FAERS Safety Report 11951200 (Version 1)
Quarter: 2016Q1

REPORT INFORMATION
  Report Type: Other
  Country: SG (occurrence: SG)
  Receive Date: 20160126
  Receipt Date: 20160126
  Transmission Date: 20160526
  Serious: Yes (Hospitalization)
  Sender: FDA-Public Use
  Company Number: SG-ASTELLAS-2016US002555

PATIENT
  Sex: Female

DRUGS (1)
  1. ADVAGRAF [Suspect]
     Active Substance: TACROLIMUS
     Indication: IMMUNOSUPPRESSANT DRUG THERAPY
     Route: 050

REACTIONS (2)
  - Infection [Unknown]
  - Diarrhoea [Unknown]
